FAERS Safety Report 7781757-9 (Version None)
Quarter: 2011Q3

REPORT INFORMATION
  Report Type: 
  Country: None (occurrence: None)
  Receive Date: 20110927
  Receipt Date: 20110922
  Transmission Date: 20111222
  Serious: Yes (Hospitalization, Disabling)
  Sender: FDA-Public Use
  Company Number: US-GLAXOSMITHKLINE-A0932546A

PATIENT
  Age: 65 Year
  Sex: Female
  Weight: 85 kg

DRUGS (17)
  1. TAVIST [Concomitant]
  2. CELEBREX [Concomitant]
  3. MOBIC [Concomitant]
  4. POTASSIUM [Concomitant]
  5. ASTELIN [Concomitant]
  6. AVANDIA [Suspect]
     Indication: DIABETES MELLITUS
     Dosage: 4MG PER DAY
     Route: 048
     Dates: end: 20060801
  7. SYNTHROID [Concomitant]
  8. ZOLOFT [Concomitant]
  9. NEXIUM [Concomitant]
  10. TRAMADOL HCL [Concomitant]
  11. XANAX [Concomitant]
  12. METFORMIN HCL [Concomitant]
  13. TORSEMIDE [Concomitant]
  14. PROTONIX [Concomitant]
  15. COREG [Concomitant]
  16. COZAAR [Concomitant]
  17. STARLIX [Concomitant]

REACTIONS (7)
  - CARDIAC FAILURE CONGESTIVE [None]
  - ANXIETY [None]
  - MYOCARDIAL INFARCTION [None]
  - HYPERTENSION [None]
  - LIVER DISORDER [None]
  - HEART RATE IRREGULAR [None]
  - CONDITION AGGRAVATED [None]
